FAERS Safety Report 5138793-0 (Version None)
Quarter: 2006Q4

REPORT INFORMATION
  Report Type: 
  Country: None (occurrence: None)
  Receive Date: 20061024
  Receipt Date: 20061009
  Transmission Date: 20070319
  Serious: Yes (Other)
  Sender: FDA-Public Use
  Company Number: 2006124967

PATIENT
  Age: 95 Year
  Sex: Male

DRUGS (4)
  1. MACUGEN [Suspect]
     Indication: CHOROIDAL NEOVASCULARISATION
     Dosage: INTRAVITREOUS
     Dates: start: 20051102
  2. WARFARIN SODIUM [Concomitant]
  3. SYNTHROID [Concomitant]
  4. NORVASC [Concomitant]

REACTIONS (3)
  - COMPLICATION OF DEVICE INSERTION [None]
  - PHARMACEUTICAL PRODUCT COMPLAINT [None]
  - PROCEDURAL PAIN [None]
